FAERS Safety Report 10040816 (Version 1)
Quarter: 2014Q1

REPORT INFORMATION
  Report Type: Report from Study
  Country: US (occurrence: US)
  Receive Date: 20140327
  Receipt Date: 20140327
  Transmission Date: 20141002
  Serious: No
  Sender: FDA-Public Use
  Company Number: US-VERTEX PHARMACEUTICALS INC-2014-001360

PATIENT
  Age: 11 Year
  Sex: Male

DRUGS (7)
  1. VX-770 [Suspect]
     Indication: CYSTIC FIBROSIS
     Dosage: 150 MG, BID
     Route: 048
     Dates: start: 20140315
  2. SYMBICORT [Concomitant]
  3. VEST [Concomitant]
  4. PULMOZYME [Concomitant]
  5. URSO [Concomitant]
  6. PROBIOTICS [Concomitant]
  7. HYPERTONIC SALINE SOLUTION [Concomitant]

REACTIONS (4)
  - Vomiting [Unknown]
  - General symptom [Not Recovered/Not Resolved]
  - Headache [Not Recovered/Not Resolved]
  - Abdominal pain upper [Recovering/Resolving]
